FAERS Safety Report 8309028-2 (Version None)
Quarter: 2012Q2

REPORT INFORMATION
  Report Type: 
  Country: None (occurrence: None)
  Receive Date: 20120424
  Receipt Date: 20120413
  Transmission Date: 20120825
  Serious: Yes (Other)
  Sender: FDA-Public Use
  Company Number: US-ELI_LILLY_AND_COMPANY-US201204005408

PATIENT
  Sex: Male

DRUGS (1)
  1. HUMAN INSULIN [Suspect]
     Indication: DIABETES MELLITUS
     Dosage: UNK

REACTIONS (2)
  - RENAL TRANSPLANT [None]
  - MEDICATION ERROR [None]
